FAERS Safety Report 8857607 (Version 3)
Quarter: 2013Q3

REPORT INFORMATION
  Report Type: Spontaneous
  Country: FR (occurrence: FR)
  Receive Date: 20121024
  Receipt Date: 20130905
  Transmission Date: 20140515
  Serious: Yes (Hospitalization)
  Sender: FDA-Public Use
  Company Number: FR-BMSGILMSD-2012-0063274

PATIENT
  Age: 32 Year
  Sex: Female

DRUGS (15)
  1. ATRIPLA [Suspect]
     Indication: HIV INFECTION
     Dosage: UNK
     Dates: start: 20120614, end: 20120623
  2. TRUVADA [Suspect]
     Indication: HIV INFECTION
     Dosage: UNK
     Dates: start: 20120518, end: 20120520
  3. PREZISTA [Suspect]
     Indication: HIV INFECTION
     Dosage: UNK
     Dates: start: 20120519, end: 20120522
  4. NORVIR [Suspect]
     Indication: HIV INFECTION
     Dosage: UNK
     Dates: start: 20120518, end: 20120522
  5. RIMIFON [Suspect]
     Indication: LYMPH NODE TUBERCULOSIS
     Dosage: UNK
     Dates: start: 20120525, end: 20120622
  6. RIMIFON [Suspect]
     Dosage: UNK
     Dates: start: 20120629, end: 20121005
  7. RIFADINE /00146901/ [Suspect]
     Indication: LYMPH NODE TUBERCULOSIS
     Dosage: UNK
     Dates: start: 20120525, end: 20120622
  8. RIFADINE /00146901/ [Suspect]
     Dosage: UNK
     Dates: start: 20120629
  9. DEXAMBUTOL [Suspect]
     Indication: LYMPH NODE TUBERCULOSIS
     Dosage: UNK
     Dates: start: 20120525, end: 20120622
  10. DEXAMBUTOL [Suspect]
     Dosage: UNK
     Dates: start: 20120629
  11. PIRILENE [Suspect]
     Indication: LYMPH NODE TUBERCULOSIS
     Dosage: UNK
     Dates: start: 20120525, end: 20120622
  12. PIRILENE [Suspect]
     Dosage: UNK
     Dates: start: 20120629
  13. SUSTIVA [Concomitant]
     Dosage: UNK
     Dates: start: 20120614, end: 20120619
  14. EMTRIVA [Concomitant]
     Dosage: UNK
     Dates: start: 20120614, end: 20120619
  15. VIREAD [Concomitant]
     Dosage: UNK
     Dates: start: 20120614, end: 20120619

REACTIONS (3)
  - Renal tubular disorder [Recovered/Resolved]
  - Renal tubular disorder [Recovered/Resolved]
  - Pyrexia [Recovered/Resolved]
